FAERS Safety Report 6596148-6 (Version None)
Quarter: 2010Q1

REPORT INFORMATION
  Report Type: 
  Country: None (occurrence: None)
  Receive Date: 20100216
  Receipt Date: 20100205
  Transmission Date: 20100710
  Serious: Yes (Hospitalization)
  Sender: FDA-Public Use
  Company Number: SPV1-2009-02595

PATIENT
  Age: 54 Year
  Sex: Female
  Weight: 89 kg

DRUGS (27)
  1. FOSRENOL [Suspect]
     Indication: HYPERPHOSPHATAEMIA
     Dosage: 500 MG, 3X/DAY:TID WITH MEALS, ORAL
     Route: 048
     Dates: start: 20090617, end: 20100113
  2. HECTORAL (DOXERCALCIFEROL) [Concomitant]
  3. VERAPAMIL [Concomitant]
  4. MAXALT /01406501/ (RIZATRIPTAN) [Concomitant]
  5. ARANESP [Concomitant]
  6. ALLEGRA /01314201/ (FEXOFENADINE) [Concomitant]
  7. VENOFER [Concomitant]
  8. LOPRESSOR [Concomitant]
  9. CELECOXIB [Concomitant]
  10. ALLOPURINOL [Concomitant]
  11. FLEXERIL /00428402/ (CYCLOBENZAPRINE HYDROCHLORIDE) [Concomitant]
  12. INSULIN LANTUS (INSULIN GLARGINE) [Concomitant]
  13. INSULIN NOVO (INSULIN) [Concomitant]
  14. ELOCON [Concomitant]
  15. NEPHROCAPS (ASCORBIC ACID, BIOTIN, CYANOCOBALAMIN, FOLIC ACID, NICOTIN [Concomitant]
  16. EFFEXOR /01233801/ (VENLAFAXINE) [Concomitant]
  17. SEROQUEL [Concomitant]
  18. OMEPRAZOLE [Concomitant]
  19. SIMVASTATIN [Concomitant]
  20. ERGOCALCIFEROL [Concomitant]
  21. VISTARIL /00058402/ (HYDROXYZINE HYDROCHLORIDE) [Concomitant]
  22. RESTORIL /00393701/ (TEMAZEPAM) [Concomitant]
  23. VICODIN [Concomitant]
  24. ATIVAN [Concomitant]
  25. ALBUTEROL /00139501/ (SALBUTAMOL) [Concomitant]
  26. CREON [Concomitant]
  27. NYSTOP (NYSTATIN) [Concomitant]

REACTIONS (1)
  - PANCREATITIS [None]
